FAERS Safety Report 5047081-2 (Version None)
Quarter: 2006Q3

REPORT INFORMATION
  Report Type: 
  Country: None (occurrence: None)
  Receive Date: 20060710
  Receipt Date: 20060328
  Transmission Date: 20061208
  Serious: Yes (Other)
  Sender: FDA-Public Use
  Company Number: US-BOEHRINGER INGELHEIM PHARMACEUTICALS, INC.-2006-BP-03726PF

PATIENT
  Sex: Female
  Weight: 81.65 kg

DRUGS (17)
  1. SPIRIVA [Suspect]
     Indication: DYSPNOEA
     Dates: start: 20050101
  2. LIPITOR [Suspect]
     Indication: MYOCARDIAL INFARCTION
     Dates: start: 19960101
  3. LIPITOR [Suspect]
  4. NITROSTAT [Suspect]
     Indication: CHEST PAIN
     Route: 060
  5. LYRICA [Suspect]
     Indication: DIABETIC NEUROPATHY
  6. INSULIN [Concomitant]
  7. METFORMIN [Concomitant]
  8. PROZAC [Concomitant]
  9. ATENOLOL [Concomitant]
  10. HYDROCHLOROTHIAZIDE [Concomitant]
  11. ISOSORBIDE [Concomitant]
  12. DIOVAN [Concomitant]
  13. ALBUTEROL SPIROS [Concomitant]
  14. COUMADIN [Concomitant]
  15. CALCIUM GLUCONATE [Concomitant]
  16. VITAMIN D [Concomitant]
  17. ASPIRIN [Concomitant]

REACTIONS (5)
  - AORTIC VALVE REPLACEMENT [None]
  - DENTAL DISCOMFORT [None]
  - DIABETIC NEUROPATHY [None]
  - DYSPNOEA [None]
  - HIGH DENSITY LIPOPROTEIN DECREASED [None]
